FAERS Safety Report 7581946-2 (Version None)
Quarter: 2011Q2

REPORT INFORMATION
  Report Type: 
  Country: None (occurrence: None)
  Receive Date: 20110629
  Receipt Date: 20110624
  Transmission Date: 20111010
  Serious: Yes (Other)
  Sender: FDA-Public Use
  Company Number: DE-BRISTOL-MYERS SQUIBB COMPANY-15856628

PATIENT
  Age: 71 Year
  Sex: Male

DRUGS (3)
  1. SEROQUEL [Suspect]
  2. ABILIFY [Suspect]
     Indication: BIPOLAR DISORDER
     Dosage: DOSE INCREASED TO 15MG IN THE MORNING PLUS 10MG IN THE EVENING,DOSE WAS AGAIN REDUCED TO 10MG/DAY
     Dates: start: 20110527
  3. VALPROIC ACID [Suspect]

REACTIONS (2)
  - ANXIETY [None]
  - ELECTROCARDIOGRAM ABNORMAL [None]
